FAERS Safety Report 6692129-2 (Version None)
Quarter: 2010Q2

REPORT INFORMATION
  Report Type: 
  Country: None (occurrence: None)
  Receive Date: 20100422
  Receipt Date: 20091125
  Transmission Date: 20101027
  Serious: No
  Sender: FDA-Public Use
  Company Number: US-ASTRAZENECA-2009SE28877

PATIENT
  Age: 84 Year
  Sex: Female
  Weight: 69.9 kg

DRUGS (1)
  1. TOPROL-XL [Suspect]
     Route: 048
     Dates: start: 20081101

REACTIONS (1)
  - WEIGHT INCREASED [None]
